FAERS Safety Report 8798728 (Version 2)
Quarter: 2012Q4

REPORT INFORMATION
  Report Type: 
  Country: US (occurrence: US)
  Receive Date: 20120920
  Receipt Date: 20121002
  Transmission Date: 20130627
  Serious: Yes (Hospitalization, Other)
  Sender: FDA-Public Use
  Company Number: US-ALEXION PHARMACEUTICALS INC.-A201201689

PATIENT
  Age: 60 Year
  Sex: Male

DRUGS (10)
  1. SOLIRIS 300MG [Suspect]
     Indication: PAROXYSMAL NOCTURNAL HAEMOGLOBINURIA
     Dosage: 600 mg, qw
     Route: 042
     Dates: start: 20080507
  2. SOLIRIS 300MG [Suspect]
     Dosage: 900 mg, q2w
     Route: 042
     Dates: start: 2008
  3. PENICILLIN VK [Concomitant]
     Dosage: 250 mg, UNK
  4. FOLIC ACID [Concomitant]
     Dosage: 1 mg, bid
     Route: 048
  5. TENORMIN [Concomitant]
     Indication: BLOOD PRESSURE
     Dosage: 50 mg, qd
     Route: 048
  6. GLIPIZIDE [Concomitant]
     Indication: DIABETES MELLITUS
     Dosage: UNK
     Route: 048
  7. MOTRIN [Concomitant]
     Indication: PAIN
     Dosage: 600 mg, qid prn
     Route: 048
  8. TYLENOL [Concomitant]
     Indication: PAIN
     Dosage: 500 mg, 2 tabs qid
     Route: 048
  9. TYLENOL [Concomitant]
     Indication: PYREXIA
  10. CIPROFLOXACIN [Concomitant]
     Dosage: 750 mg, bid
     Route: 048

REACTIONS (4)
  - Diabetes mellitus [Not Recovered/Not Resolved]
  - Escherichia bacteraemia [Recovered/Resolved]
  - Urinary tract infection [Unknown]
  - Gastrooesophageal reflux disease [Unknown]
